FAERS Safety Report 11307672 (Version 2)
Quarter: 2015Q3

REPORT INFORMATION
  Report Type: Spontaneous
  Country: CH (occurrence: CH)
  Receive Date: 20150724
  Receipt Date: 20150729
  Transmission Date: 20151125
  Serious: Yes (Death, Life-Threatening, Hospitalization, Other)
  Sender: FDA-Public Use
  Company Number: CH-ASTRAZENECA-2015SE71113

PATIENT
  Age: 6539 Day
  Sex: Male

DRUGS (2)
  1. SEROQUEL [Suspect]
     Active Substance: QUETIAPINE FUMARATE
     Indication: AUTISM SPECTRUM DISORDER
     Route: 048
     Dates: start: 20101031, end: 20110222
  2. NOZINAN [Interacting]
     Active Substance: LEVOMEPROMAZINE
     Indication: ANXIETY
     Route: 048
     Dates: start: 20110127, end: 20110222

REACTIONS (5)
  - Drug interaction [Unknown]
  - Suicide attempt [Unknown]
  - Completed suicide [Fatal]
  - Anxiety [Unknown]
  - Depression [Unknown]

NARRATIVE: CASE EVENT DATE: 20110222
